FAERS Safety Report 11838994 (Version 1)
Quarter: 2015Q4

REPORT INFORMATION
  Report Type: Spontaneous
  Country: US (occurrence: US)
  Receive Date: 20151216
  Receipt Date: 20151216
  Transmission Date: 20160305
  Serious: Yes (Hospitalization)
  Sender: FDA-Public Use
  Company Number: US-GE HEALTHCARE MEDICAL DIAGNOSTICS-TCGN-PR-1512L-0006

PATIENT
  Age: 50 Year
  Sex: Male
  Weight: 131.66 kg

DRUGS (21)
  1. RENAL VITAMINS [Concomitant]
  2. CEFAZOLIN [Concomitant]
     Active Substance: CEFAZOLIN
  3. TECHNETIUM TC-99M GENERATOR [Suspect]
     Active Substance: TECHNETIUM TC-99M
     Indication: DIAGNOSTIC PROCEDURE
  4. MAGNESIUM OXIDE. [Concomitant]
     Active Substance: MAGNESIUM OXIDE
  5. DIGOXIN. [Concomitant]
     Active Substance: DIGOXIN
  6. VANCOMYCIN [Concomitant]
     Active Substance: VANCOMYCIN
  7. ASPIRIN. [Concomitant]
     Active Substance: ASPIRIN
  8. ERYTHROPOIETIN [Concomitant]
     Active Substance: ERYTHROPOIETIN
  9. METOPROLOL [Concomitant]
     Active Substance: METOPROLOL
  10. PANTOPRAZOLE [Concomitant]
     Active Substance: PANTOPRAZOLE SODIUM
  11. INSULIN LISPRO [Concomitant]
     Active Substance: INSULIN LISPRO
  12. COUMADIN [Concomitant]
     Active Substance: WARFARIN SODIUM
  13. CERETEC [Suspect]
     Active Substance: EXAMETAZIME\TECHNETIUM TC-99M EXAMETAZIME
     Indication: OSTEOMYELITIS
     Route: 042
  14. TRAMADOL. [Concomitant]
     Active Substance: TRAMADOL
  15. CERETEC [Suspect]
     Active Substance: EXAMETAZIME\TECHNETIUM TC-99M EXAMETAZIME
     Indication: DIAGNOSTIC PROCEDURE
  16. FERROUS SULFATE [Concomitant]
     Active Substance: FERROUS SULFATE\FERROUS SULFATE, DRIED
  17. INSULIN GLARGINE [Concomitant]
     Active Substance: INSULIN GLARGINE
  18. SENNA-DOCUSATE [Concomitant]
  19. TECHNETIUM TC-99M GENERATOR [Suspect]
     Active Substance: TECHNETIUM TC-99M
     Indication: OSTEOMYELITIS
     Route: 042
  20. INDOMETHACIN. [Suspect]
     Active Substance: INDOMETHACIN
  21. COLCHICINE. [Concomitant]
     Active Substance: COLCHICINE

REACTIONS (1)
  - Hypersensitivity vasculitis [Recovered/Resolved]
